FAERS Safety Report 8476838-0 (Version None)
Quarter: 2012Q2

REPORT INFORMATION
  Report Type: 
  Country: None (occurrence: None)
  Receive Date: 20120629
  Receipt Date: 20120626
  Transmission Date: 20120825
  Serious: Yes (Death, Other)
  Sender: FDA-Public Use
  Company Number: US-AMGEN-USASP2012039585

PATIENT
  Age: 78 Year
  Sex: Female

DRUGS (13)
  1. LISINOPRIL [Concomitant]
  2. ASPIRIN [Concomitant]
  3. CALCIUM WITH VITAMIN D             /00944201/ [Concomitant]
  4. VIMOVO [Concomitant]
     Indication: INFLAMMATION
  5. EXELON [Concomitant]
  6. PHENERGAN [Concomitant]
     Indication: NAUSEA
  7. PROLIA [Suspect]
     Indication: OSTEOPOROSIS POSTMENOPAUSAL
     Dosage: 60 MG, UNK
  8. OXYCODONE HCL [Concomitant]
  9. SIMVASTATIN [Concomitant]
  10. VIMOVO [Concomitant]
     Indication: PAIN
  11. CELEBREX [Concomitant]
  12. IMODIUM [Concomitant]
  13. VICODIN [Concomitant]
     Indication: PAIN

REACTIONS (7)
  - COMPRESSION FRACTURE [None]
  - FATIGUE [None]
  - DEATH [None]
  - GASTRITIS [None]
  - FALL [None]
  - CONSTIPATION [None]
  - MALNUTRITION [None]
